FAERS Safety Report 9493508 (Version 1)
Quarter: 2013Q3

REPORT INFORMATION
  Report Type: Spontaneous
  Country: US (occurrence: US)
  Receive Date: 20130902
  Receipt Date: 20130902
  Transmission Date: 20140515
  Serious: No
  Sender: FDA-Public Use
  Company Number: US-PFIZER INC-2013248725

PATIENT
  Age: 83 Year
  Sex: Female
  Weight: 59.9 kg

DRUGS (2)
  1. PREMARIN [Suspect]
     Dosage: UNK
     Route: 067
  2. SYNTHROID [Concomitant]
     Dosage: UNK, 1X/DAY

REACTIONS (1)
  - Drug hypersensitivity [Unknown]
